FAERS Safety Report 14319975 (Version 10)
Quarter: 2018Q2

REPORT INFORMATION
  Report Type: Report from Study
  Country: GB (occurrence: GB)
  Receive Date: 20171222
  Receipt Date: 20180517
  Transmission Date: 20180711
  Serious: Yes (Hospitalization, Other)
  Sender: FDA-Public Use
  Company Number: GB-BRISTOL-MYERS SQUIBB COMPANY-BMS-2016-026739

PATIENT
  Sex: Female

DRUGS (1)
  1. ABATACEPT [Suspect]
     Active Substance: ABATACEPT
     Indication: RHEUMATOID ARTHRITIS
     Dosage: 125 MG, QWK
     Route: 058
     Dates: start: 20160105

REACTIONS (7)
  - Fall [Unknown]
  - Malaise [Unknown]
  - Infection [Unknown]
  - Cellulitis [Not Recovered/Not Resolved]
  - Muscle strain [Unknown]
  - Gait disturbance [Unknown]
  - Drug dose omission [Unknown]
